FAERS Safety Report 23741552 (Version 1)
Quarter: 2024Q2

REPORT INFORMATION
  Report Type: Spontaneous
  Country: IE (occurrence: IE)
  Receive Date: 20240415
  Receipt Date: 20240415
  Transmission Date: 20240716
  Serious: Yes (Other)
  Sender: FDA-Public Use
  Company Number: None

PATIENT
  Age: 3 Year
  Sex: Male
  Weight: 14.96 kg

DRUGS (2)
  1. MONTELUKAST SODIUM [Suspect]
     Active Substance: MONTELUKAST SODIUM
     Indication: Asthma
     Dosage: ONCE BEFORE BED MIXED WITH JAM
     Route: 048
     Dates: start: 20240225, end: 20240301
  2. VENTOLIN [Concomitant]
     Active Substance: ALBUTEROL SULFATE
     Indication: Dyspnoea
     Dosage: WHEN NEEDED TWICE DAILY
     Dates: start: 20231204, end: 20240303

REACTIONS (2)
  - Sleep terror [Unknown]
  - Aggression [Unknown]

NARRATIVE: CASE EVENT DATE: 20240225
